FAERS Safety Report 12259088 (Version 1)
Quarter: 2016Q2

REPORT INFORMATION
  Report Type: Spontaneous
  Country: US (occurrence: US)
  Receive Date: 20160412
  Receipt Date: 20160412
  Transmission Date: 20160815
  Serious: No
  Sender: FDA-Public Use
  Company Number: US-SA-2015SA073371

PATIENT
  Age: 79 Year
  Sex: Female

DRUGS (3)
  1. ALLEGRA [Suspect]
     Active Substance: FEXOFENADINE HYDROCHLORIDE
     Indication: SEASONAL ALLERGY
     Dosage: TAKEN FROM: FOR A COUPLE OF DAYS?TAKEN TO: A WEEK AGO
     Route: 048
  2. ALLEGRA [Suspect]
     Active Substance: FEXOFENADINE HYDROCHLORIDE
     Indication: LACRIMATION INCREASED
     Dosage: TAKEN FROM: FOR A COUPLE OF DAYS?TAKEN TO: A WEEK AGO
     Route: 048
  3. ALLEGRA [Suspect]
     Active Substance: FEXOFENADINE HYDROCHLORIDE
     Indication: RHINORRHOEA
     Dosage: TAKEN FROM: FOR A COUPLE OF DAYS?TAKEN TO: A WEEK AGO
     Route: 048

REACTIONS (1)
  - Drug ineffective [Unknown]
